FAERS Safety Report 16974423 (Version 2)
Quarter: 2020Q2

REPORT INFORMATION
  Report Type: Spontaneous
  Country: FR (occurrence: FR)
  Receive Date: 20191030
  Receipt Date: 20200625
  Transmission Date: 20200713
  Serious: Yes (Hospitalization, Other)
  Sender: FDA-Public Use
  Company Number: FR-SA-2019SA295857

PATIENT

DRUGS (2)
  1. PYOSTACINE [Suspect]
     Active Substance: PRISTINAMYCIN
     Indication: ESCHAR
     Dosage: 3 G, QD
     Route: 048
     Dates: start: 20190925, end: 20191010
  2. RIFADINE [Suspect]
     Active Substance: RIFAMPIN
     Indication: ESCHAR
     Dosage: 1200 MG, QD
     Route: 048
     Dates: start: 20190925, end: 20191010

REACTIONS (3)
  - Eosinophilia [Recovered/Resolved]
  - Urticaria [Recovered/Resolved]
  - Cholestasis [Recovered/Resolved]

NARRATIVE: CASE EVENT DATE: 20191010
